FAERS Safety Report 4564241-5 (Version None)
Quarter: 2005Q1

REPORT INFORMATION
  Report Type: 
  Country: None (occurrence: None)
  Receive Date: 20050128
  Receipt Date: 20031222
  Transmission Date: 20050727
  Serious: No
  Sender: FDA-Public Use
  Company Number: US-GLAXOSMITHKLINE-A0443911A

PATIENT
  Age: 27 Year
  Sex: Male

DRUGS (1)
  1. COMBIVIR [Suspect]
     Indication: PROPHYLAXIS
     Dosage: 1TAB TWO TIMES PER WEEK
     Route: 048
     Dates: start: 20031215

REACTIONS (1)
  - NAUSEA [None]
